FAERS Safety Report 14079309 (Version 4)
Quarter: 2022Q3

REPORT INFORMATION
  Report Type: Report from Study
  Country: CA (occurrence: CA)
  Receive Date: 20171012
  Receipt Date: 20220704
  Transmission Date: 20221027
  Serious: Yes (Other)
  Sender: FDA-Public Use
  Company Number: CA-GLAXOSMITHKLINE-CA2017GSK156609

PATIENT

DRUGS (2)
  1. ALBUTEROL SULFATE [Suspect]
     Active Substance: ALBUTEROL SULFATE
     Indication: Product used for unknown indication
     Dosage: UNK
  2. NUCALA [Suspect]
     Active Substance: MEPOLIZUMAB
     Indication: Asthma
     Dosage: 100 MG, Z (MONTHLY)
     Route: 042
     Dates: start: 20171020

REACTIONS (5)
  - Lung neoplasm malignant [Unknown]
  - Atrial fibrillation [Unknown]
  - Lung carcinoma cell type unspecified recurrent [Unknown]
  - Hypertension [Unknown]
  - Asthma [Unknown]

NARRATIVE: CASE EVENT DATE: 20140801
